FAERS Safety Report 9665585 (Version 1)
Quarter: 2013Q4

REPORT INFORMATION
  Report Type: Spontaneous
  Country: US (occurrence: US)
  Receive Date: 20131104
  Receipt Date: 20131104
  Transmission Date: 20140711
  Serious: Yes (Hospitalization)
  Sender: FDA-Public Use
  Company Number: US-JNJFOC-20131016260

PATIENT
  Sex: Male
  Weight: 74.84 kg

DRUGS (3)
  1. XARELTO [Suspect]
     Indication: DEEP VEIN THROMBOSIS
     Route: 048
     Dates: start: 201310
  2. XARELTO [Suspect]
     Indication: DEEP VEIN THROMBOSIS
     Route: 048
     Dates: start: 201309, end: 2013
  3. SINGULAIR [Concomitant]
     Indication: ASTHMA
     Route: 065

REACTIONS (5)
  - Haematuria [Recovered/Resolved]
  - Urinary tract infection [Recovered/Resolved]
  - Periorbital contusion [Unknown]
  - Fall [Recovered/Resolved]
  - Adverse event [Unknown]
